FAERS Safety Report 9040352 (Version 1)
Quarter: 2013Q1

REPORT INFORMATION
  Report Type: Report from Study
  Country: US (occurrence: US)
  Receive Date: 20130129
  Receipt Date: 20130129
  Transmission Date: 20140127
  Serious: Yes (Hospitalization)
  Sender: FDA-Public Use
  Company Number: US-ABBOTT-11P-163-0882018-00

PATIENT
  Age: 67 None
  Sex: Female
  Weight: 95.79 kg

DRUGS (4)
  1. HUMIRA 40 MG/0.8 ML PEN [Suspect]
     Indication: PSORIATIC ARTHROPATHY
     Route: 058
     Dates: end: 200910
  2. HUMIRA 40 MG/0.8 ML PEN [Suspect]
     Dates: start: 2009, end: 2009
  3. HUMIRA 40 MG/0.8 ML PEN [Suspect]
     Dates: end: 201012
  4. HUMIRA 40 MG/0.8 ML PEN [Suspect]
     Dates: end: 201112

REACTIONS (7)
  - Staphylococcal infection [Unknown]
  - Cellulitis [Unknown]
  - Joint injury [Unknown]
  - Upper respiratory tract infection [Unknown]
  - Bronchitis [Unknown]
  - Inflammation [Unknown]
  - Cyst [Unknown]
